FAERS Safety Report 16720857 (Version 1)
Quarter: 2019Q3

REPORT INFORMATION
  Report Type: Spontaneous
  Country: US (occurrence: US)
  Receive Date: 20190703
  Receipt Date: 20190703
  Transmission Date: 20191005
  Serious: No
  Sender: FDA-Public Use
  Company Number: None

PATIENT
  Age: 55 Year
  Sex: Female

DRUGS (2)
  1. LETAIRIS 10MG [Concomitant]
     Dates: start: 20180718, end: 20190703
  2. SILDENAFIL TAB 20 MG [Suspect]
     Active Substance: SILDENAFIL
     Route: 048
     Dates: start: 201807

REACTIONS (1)
  - Therapeutic product effect incomplete [None]

NARRATIVE: CASE EVENT DATE: 20190703
